FAERS Safety Report 18626861 (Version 1)
Quarter: 2020Q4

REPORT INFORMATION
  Report Type: Spontaneous
  Country: US (occurrence: US)
  Receive Date: 20201217
  Receipt Date: 20201217
  Transmission Date: 20210114
  Serious: Yes (Other)
  Sender: FDA-Public Use
  Company Number: US-SA-2020SA358323

PATIENT

DRUGS (20)
  1. LIDOCAINE. [Concomitant]
     Active Substance: LIDOCAINE
  2. PREDNISONE. [Concomitant]
     Active Substance: PREDNISONE
  3. NATURE-THROID [Concomitant]
     Active Substance: THYROID, PORCINE
  4. VALACYCLOVIR HCL [Concomitant]
     Active Substance: VALACYCLOVIR HYDROCHLORIDE
  5. DEXAMETHASONE. [Concomitant]
     Active Substance: DEXAMETHASONE
     Dosage: UNK
  6. BOTOX [Concomitant]
     Active Substance: ONABOTULINUMTOXINA
  7. ATORVASTATIN CALCIUM. [Concomitant]
     Active Substance: ATORVASTATIN CALCIUM
  8. ALENDRONATE SODIUM. [Concomitant]
     Active Substance: ALENDRONATE SODIUM
  9. XIIDRA [Concomitant]
     Active Substance: LIFITEGRAST
  10. MIRALAX [Concomitant]
     Active Substance: POLYETHYLENE GLYCOL 3350
  11. SPIRIVA [Concomitant]
     Active Substance: TIOTROPIUM BROMIDE MONOHYDRATE
  12. LOTEMAX [Concomitant]
     Active Substance: LOTEPREDNOL ETABONATE
  13. CELEXA [CELECOXIB] [Concomitant]
     Active Substance: CELECOXIB
  14. AUBAGIO [Suspect]
     Active Substance: TERIFLUNOMIDE
     Dosage: 14 MG, QD
     Route: 048
  15. PLAVIX [Concomitant]
     Active Substance: CLOPIDOGREL BISULFATE
     Dosage: UNK
  16. PROAIR HFA [Concomitant]
     Active Substance: ALBUTEROL SULFATE
  17. AMBIEN CR [Concomitant]
     Active Substance: ZOLPIDEM TARTRATE
  18. XANAX [Concomitant]
     Active Substance: ALPRAZOLAM
  19. MAXALT [Concomitant]
     Active Substance: RIZATRIPTAN BENZOATE
  20. AUBAGIO [Suspect]
     Active Substance: TERIFLUNOMIDE
     Indication: MULTIPLE SCLEROSIS
     Dosage: 14 MG, QD
     Route: 048
     Dates: start: 20160108

REACTIONS (2)
  - Product dose omission issue [Unknown]
  - Multiple sclerosis relapse [Unknown]
